FAERS Safety Report 8822701 (Version 4)
Quarter: 2012Q4

REPORT INFORMATION
  Report Type: 
  Country: BR (occurrence: BR)
  Receive Date: 20121003
  Receipt Date: 20121218
  Transmission Date: 20130627
  Serious: Yes (Death, Other)
  Sender: FDA-Public Use
  Company Number: BR-BRISTOL-MYERS SQUIBB COMPANY-17012899

PATIENT
  Age: 76 Year
  Sex: Female

DRUGS (4)
  1. BECENUN [Suspect]
     Indication: NON-HODGKIN^S LYMPHOMA
     Dosage: on day 1.
     Route: 042
     Dates: start: 20120530
  2. ETOPOSIDE [Suspect]
     Indication: NON-HODGKIN^S LYMPHOMA
     Dosage: D2 TO D5
     Route: 042
     Dates: start: 20120530
  3. CYTARABINE [Suspect]
     Indication: NON-HODGKIN^S LYMPHOMA
     Dosage: day 2 to day 5
     Route: 042
     Dates: start: 20120530
  4. MELPHALAN [Suspect]
     Indication: NON-HODGKIN^S LYMPHOMA
     Dosage: on dy6
     Route: 042

REACTIONS (8)
  - Death [Fatal]
  - Pancytopenia [Unknown]
  - Haemorrhage [Unknown]
  - Pleural effusion [Unknown]
  - Atelectasis [Unknown]
  - Renal failure [Unknown]
  - Cerebral infarction [Unknown]
  - Erythema [Unknown]
